FAERS Safety Report 18544104 (Version 1)
Quarter: 2020Q4

REPORT INFORMATION
  Report Type: Spontaneous
  Country: JP (occurrence: JP)
  Receive Date: 20201125
  Receipt Date: 20201125
  Transmission Date: 20210114
  Serious: Yes (Death, Hospitalization, Other)
  Sender: FDA-Public Use
  Company Number: JP-ASTELLAS-2020JP018359

PATIENT
  Age: 77 Year
  Sex: Female

DRUGS (12)
  1. PROGRAF [Suspect]
     Active Substance: TACROLIMUS
     Indication: RHEUMATOID ARTHRITIS
     Route: 048
     Dates: start: 20150415, end: 20200916
  2. LOXONIN [Concomitant]
     Active Substance: LOXOPROFEN SODIUM
     Indication: RHEUMATOID ARTHRITIS
     Route: 048
     Dates: start: 20171115, end: 20200916
  3. LOXONIN PAP [Concomitant]
     Indication: RHEUMATOID ARTHRITIS
     Route: 050
     Dates: start: 20180516, end: 20200812
  4. FOLIAMIN [Concomitant]
     Active Substance: FOLIC ACID
     Indication: RHEUMATOID ARTHRITIS
     Dosage: 5 MG, WEEKLY, ONCE DAILY
     Route: 048
     Dates: start: 20200215, end: 20200916
  5. OPALMON [Concomitant]
     Active Substance: LIMAPROST
     Indication: LUMBAR SPINAL STENOSIS
     Dosage: 5 UG, THRICE DAILY
     Route: 048
     Dates: start: 20130703, end: 20200916
  6. EVENITY [Suspect]
     Active Substance: ROMOSOZUMAB-AQQG
     Indication: OSTEOPOROSIS
     Dosage: 210 MG, MONTHLY, ONCE A DAY
     Route: 058
     Dates: start: 20200617, end: 20200916
  7. PREDONINE [Suspect]
     Active Substance: PREDNISOLONE
     Indication: RHEUMATOID ARTHRITIS
     Route: 048
     Dates: end: 20200916
  8. ALFAROL [Concomitant]
     Active Substance: ALFACALCIDOL
     Indication: OSTEOPOROSIS
     Dosage: 1 UG, ONCE DAILY
     Route: 048
     Dates: start: 20040916, end: 20200916
  9. FOLIAMIN [Concomitant]
     Active Substance: FOLIC ACID
     Indication: HEPATIC FUNCTION ABNORMAL
  10. EVENITY [Suspect]
     Active Substance: ROMOSOZUMAB-AQQG
     Indication: SPINAL COMPRESSION FRACTURE
  11. RHEUMATREX [Concomitant]
     Active Substance: METHOTREXATE SODIUM
     Indication: RHEUMATOID ARTHRITIS
     Dosage: 4 MG, WEEKLY, ONCE A DAY
     Route: 048
     Dates: start: 2004, end: 20200916
  12. LOXONIN [Concomitant]
     Active Substance: LOXOPROFEN SODIUM
     Indication: RHEUMATOID ARTHRITIS
     Route: 050
     Dates: start: 20200916, end: 20200916

REACTIONS (1)
  - Brain stem haemorrhage [Fatal]

NARRATIVE: CASE EVENT DATE: 20200926
